FAERS Safety Report 22532928 (Version 5)
Quarter: 2023Q4

REPORT INFORMATION
  Report Type: Spontaneous
  Country: DE (occurrence: DE)
  Receive Date: 20230607
  Receipt Date: 20231027
  Transmission Date: 20240109
  Serious: Yes (Other)
  Sender: FDA-Public Use
  Company Number: DE-AMGEN-DEUNI2023089328

PATIENT
  Age: 62 Year
  Sex: Female
  Weight: 71 kg

DRUGS (11)
  1. DEXAMETHASONE [Suspect]
     Active Substance: DEXAMETHASONE
     Indication: Plasma cell myeloma
     Dosage: 20 MILLIGRAM
     Route: 065
     Dates: start: 20191107
  2. DEXAMETHASONE [Suspect]
     Active Substance: DEXAMETHASONE
     Dosage: 20 MILLIGRAM
     Route: 065
     Dates: start: 20230419, end: 20230504
  3. CARFILZOMIB [Suspect]
     Active Substance: CARFILZOMIB
     Indication: Plasma cell myeloma
     Dosage: 96.88 MILLIGRAM
     Route: 065
     Dates: start: 20230420, end: 20230428
  4. CARFILZOMIB [Suspect]
     Active Substance: CARFILZOMIB
     Dosage: UNK(CARFILZOMIB REDUCED AS OF CYCLE 3)
     Route: 065
     Dates: start: 2023
  5. CARFILZOMIB [Suspect]
     Active Substance: CARFILZOMIB
     Dosage: 62.28 MILLIGRAM (REDUCED SINCE CYCLE 4)
     Route: 065
  6. CARFILZOMIB [Suspect]
     Active Substance: CARFILZOMIB
     Dosage: 46.71 MILLIGRAM (REDUCED SINCE CYCLE 5)
     Route: 065
  7. CARFILZOMIB [Suspect]
     Active Substance: CARFILZOMIB
     Dosage: 77.85 MILLIGRAM (REDUCED SINCE CYCLE 3)
     Route: 065
  8. DARATUMUMAB [Suspect]
     Active Substance: DARATUMUMAB
     Indication: Plasma cell myeloma
     Route: 065
     Dates: start: 20230419
  9. DARATUMUMAB [Suspect]
     Active Substance: DARATUMUMAB
     Dosage: 1136 MILLIGRAM
     Route: 065
     Dates: start: 20230427, end: 20230511
  10. DENOSUMAB [Suspect]
     Active Substance: DENOSUMAB
     Indication: Plasma cell myeloma
     Dosage: 120 MILLIGRAM
     Route: 065
     Dates: start: 20230419
  11. DENOSUMAB [Suspect]
     Active Substance: DENOSUMAB
     Dosage: 120 MILLIGRAM
     Route: 065
     Dates: start: 20230427

REACTIONS (1)
  - Thrombocytopenia [Not Recovered/Not Resolved]

NARRATIVE: CASE EVENT DATE: 20230504
